FAERS Safety Report 8941663 (Version 1)
Quarter: 2012Q4

REPORT INFORMATION
  Report Type: 
  Country: US (occurrence: US)
  Receive Date: 20121203
  Receipt Date: 20121203
  Transmission Date: 20130627
  Serious: Yes (Death)
  Sender: FDA-Public Use
  Company Number: PHEH2012US023556

PATIENT
  Sex: Male
  Weight: 130 kg

DRUGS (1)
  1. EXJADE [Suspect]
     Indication: MYELOFIBROSIS
     Dosage: 250 mg, daily
     Route: 048
     Dates: start: 201206, end: 201211

REACTIONS (1)
  - Death [Fatal]
